FAERS Safety Report 6833427-9 (Version None)
Quarter: 2010Q3

REPORT INFORMATION
  Report Type: 
  Country: None (occurrence: None)
  Receive Date: 20100712
  Receipt Date: 20070321
  Transmission Date: 20110219
  Serious: No
  Sender: FDA-Public Use
  Company Number: US-PFIZER INC-2007022560

PATIENT
  Sex: Male
  Weight: 78.47 kg

DRUGS (9)
  1. CHANTIX [Suspect]
     Indication: SMOKING CESSATION THERAPY
     Dates: start: 20070304
  2. ATENOLOL [Concomitant]
  3. MICARDIS [Concomitant]
  4. PAXIL [Concomitant]
  5. ACETYLSALICYLIC ACID [Concomitant]
  6. AMBIEN [Concomitant]
     Indication: SLEEP DISORDER
  7. VITAMIN E [Concomitant]
  8. VITAMIN B COMPLEX CAP [Concomitant]
  9. MULTI-VITAMINS [Concomitant]

REACTIONS (2)
  - ABNORMAL DREAMS [None]
  - DRUG INEFFECTIVE [None]
